FAERS Safety Report 9602866 (Version 2)
Quarter: 2013Q4

REPORT INFORMATION
  Report Type: Spontaneous
  Country: SE (occurrence: SE)
  Receive Date: 20131007
  Receipt Date: 20131018
  Transmission Date: 20140711
  Serious: Yes (Other)
  Sender: FDA-Public Use
  Company Number: ALCN2013SE005015

PATIENT
  Age: 80 Year
  Sex: Male

DRUGS (1)
  1. MAXIDEX [Suspect]
     Indication: GLAUCOMA
     Dosage: UNK
     Route: 047
     Dates: start: 20130315, end: 20130327

REACTIONS (1)
  - Hallucination [Recovering/Resolving]
